FAERS Safety Report 7354882-4 (Version None)
Quarter: 2011Q1

REPORT INFORMATION
  Report Type: 
  Country: None (occurrence: None)
  Receive Date: 20110316
  Receipt Date: 20110307
  Transmission Date: 20110831
  Serious: Yes (Hospitalization, Other)
  Sender: FDA-Public Use
  Company Number: TR-TEVA-270879ISR

PATIENT
  Age: 74 Year
  Sex: Female

DRUGS (1)
  1. DICLOFENAC [Suspect]
     Route: 048

REACTIONS (2)
  - KOUNIS SYNDROME [None]
  - RESPIRATORY TRACT INFECTION [None]
